FAERS Safety Report 25395480 (Version 2)
Quarter: 2025Q2

REPORT INFORMATION
  Report Type: Spontaneous
  Country: US (occurrence: US)
  Receive Date: 20250604
  Receipt Date: 20250616
  Transmission Date: 20250716
  Serious: Yes (Death, Other)
  Sender: ALEXION PHARMACEUTICALS
  Company Number: US-AstraZeneca-CH-00880577A

PATIENT
  Age: 9 Month
  Weight: 7.5 kg

DRUGS (2)
  1. SOLIRIS [Suspect]
     Active Substance: ECULIZUMAB
     Indication: Thrombotic microangiopathy
  2. VITAMIN K [Concomitant]
     Active Substance: PHYTONADIONE
     Indication: Coagulopathy
     Route: 065

REACTIONS (25)
  - Haemorrhage [Fatal]
  - Pulmonary haemorrhage [Fatal]
  - Shock haemorrhagic [Fatal]
  - Cholestasis [Fatal]
  - Intra-abdominal haemorrhage [Fatal]
  - Renal tubular necrosis [Fatal]
  - Intestinal perforation [Fatal]
  - Renal failure [Fatal]
  - Thrombotic microangiopathy [Fatal]
  - Hepatic fibrosis [Fatal]
  - Hypoxic-ischaemic encephalopathy [Fatal]
  - Splenic infarction [Fatal]
  - Hepatic necrosis [Fatal]
  - Haemorrhage coronary artery [Fatal]
  - Haemoperitoneum [Fatal]
  - Portal hypertension [Fatal]
  - Duodenal perforation [Fatal]
  - Candida infection [Fatal]
  - Vascular pseudoaneurysm [Fatal]
  - Calcinosis [Fatal]
  - Anorectal varices [Fatal]
  - Haemodynamic instability [Fatal]
  - Ischaemia [Fatal]
  - Blood lactic acid increased [Fatal]
  - Haematoma [Fatal]
